FAERS Safety Report 6502536-6 (Version None)
Quarter: 2009Q4

REPORT INFORMATION
  Report Type: 
  Country: None (occurrence: None)
  Receive Date: 20091217
  Receipt Date: 20091210
  Transmission Date: 20100525
  Serious: Yes (Death)
  Sender: FDA-Public Use
  Company Number: US-BIOGENIDEC-2009BI038901

PATIENT
  Age: 67 Year
  Sex: Female

DRUGS (3)
  1. AVONEX [Suspect]
     Indication: MULTIPLE SCLEROSIS
     Route: 030
     Dates: start: 20051001
  2. AVONEX [Suspect]
     Route: 030
     Dates: start: 19990725
  3. AVONEX [Suspect]
     Route: 030
     Dates: start: 20050701, end: 20050901

REACTIONS (2)
  - PANCREATITIS [None]
  - PNEUMONIA [None]
